FAERS Safety Report 16104686 (Version 2)
Quarter: 2020Q1

REPORT INFORMATION
  Report Type: Spontaneous
  Country: GB (occurrence: GB)
  Receive Date: 20190322
  Receipt Date: 20200313
  Transmission Date: 20200409
  Serious: Yes (Disabling, Other)
  Sender: FDA-Public Use
  Company Number: GB-TORRENT-00020609

PATIENT
  Age: 26 Year
  Sex: Female
  Weight: 53 kg

DRUGS (3)
  1. ARIPIPRAZOLE. [Suspect]
     Active Substance: ARIPIPRAZOLE
     Indication: BIPOLAR DISORDER
     Route: 048
     Dates: start: 20150801, end: 20180801
  2. SERTRALINE [Concomitant]
     Active Substance: SERTRALINE HYDROCHLORIDE
     Indication: PRODUCT USED FOR UNKNOWN INDICATION
     Dosage: STARTED SOMEWHERE BETWEEN 5 AND 7 YEARS AGO AND STOPPED IN FEB/MARCH 2019
     Dates: end: 2019
  3. DEPAKOTE [Concomitant]
     Active Substance: DIVALPROEX SODIUM
     Indication: PRODUCT USED FOR UNKNOWN INDICATION
     Dosage: STOPPED IN JUL-2018 THEN RESTARTED, WITHOUT ISSUE, IN JUL-2019
     Dates: start: 2014

REACTIONS (2)
  - Anal incontinence [Recovered/Resolved with Sequelae]
  - Bile acid malabsorption [Unknown]

NARRATIVE: CASE EVENT DATE: 20150810
